FAERS Safety Report 6403689-0 (Version None)
Quarter: 2009Q4

REPORT INFORMATION
  Report Type: 
  Country: None (occurrence: None)
  Receive Date: 20091016
  Receipt Date: 20091012
  Transmission Date: 20100525
  Serious: Yes (Other)
  Sender: FDA-Public Use
  Company Number: ID-ELI_LILLY_AND_COMPANY-ID200910002580

PATIENT
  Sex: Female

DRUGS (2)
  1. GEMCITABINE HCL [Suspect]
     Indication: OVARIAN CANCER
     Dosage: 2400 MG/M2, OTHER
     Route: 065
     Dates: start: 20091009
  2. OXALIPLATIN [Concomitant]
     Indication: OVARIAN CANCER
     Dosage: 110 MG/M2, OTHER
     Route: 065
     Dates: start: 20091009

REACTIONS (3)
  - BONE PAIN [None]
  - HAEMATEMESIS [None]
  - THROMBOCYTOPENIA [None]
